FAERS Safety Report 21360389 (Version 1)
Quarter: 2022Q3

REPORT INFORMATION
  Report Type: Spontaneous
  Country: US (occurrence: US)
  Receive Date: 20220921
  Receipt Date: 20220921
  Transmission Date: 20221027
  Serious: Yes (Other)
  Sender: FDA-Public Use
  Company Number: US-MYLANLABS-2022M1095200

PATIENT
  Age: 4 Year
  Sex: Male

DRUGS (2)
  1. FLUTICASONE PROPIONATE\SALMETEROL XINAFOATE [Suspect]
     Active Substance: FLUTICASONE PROPIONATE\SALMETEROL XINAFOATE
     Indication: Bronchiolitis
     Dosage: UNK, HIGH-DOSE (RESPIRATORY (INHALATION))
     Route: 055
  2. MEPOLIZUMAB [Concomitant]
     Active Substance: MEPOLIZUMAB
     Indication: Bronchiolitis
     Dosage: 40 MILLIGRAM, MONTHLY
     Route: 058

REACTIONS (1)
  - Drug ineffective [Unknown]
